FAERS Safety Report 6467631-9 (Version None)
Quarter: 2009Q4

REPORT INFORMATION
  Report Type: 
  Country: None (occurrence: None)
  Receive Date: 20091202
  Receipt Date: 20091116
  Transmission Date: 20100525
  Serious: Yes (Other)
  Sender: FDA-Public Use
  Company Number: PHHY2009US50937

PATIENT
  Age: 72 Year
  Sex: Female

DRUGS (7)
  1. DIOVAN [Suspect]
  2. HYDRALAZINE HCL [Suspect]
     Dosage: UNK
  3. ASPIRIN [Concomitant]
  4. FUROSEMIDE [Concomitant]
  5. COREG [Concomitant]
  6. IRON [Concomitant]
  7. PREVACID [Concomitant]

REACTIONS (8)
  - DISCOMFORT [None]
  - DIVERTICULUM [None]
  - GASTRITIS [None]
  - GASTROINTESTINAL TRACT MUCOSAL PIGMENTATION [None]
  - HIATUS HERNIA [None]
  - NAUSEA [None]
  - OESOPHAGEAL STENOSIS [None]
  - VOMITING [None]
